FAERS Safety Report 17931498 (Version 1)
Quarter: 2020Q2

REPORT INFORMATION
  Report Type: Spontaneous
  Country: IT (occurrence: IT)
  Receive Date: 20200624
  Receipt Date: 20200624
  Transmission Date: 20200714
  Serious: Yes (Other)
  Sender: FDA-Public Use
  Company Number: IT-TEVA-2020-IT-1789506

PATIENT
  Age: 61 Year
  Sex: Female

DRUGS (4)
  1. NATRILIX [Concomitant]
     Active Substance: INDAPAMIDE
  2. DIBASE [Concomitant]
     Active Substance: CHOLECALCIFEROL
  3. ALENDRONATE SODIUM. [Suspect]
     Active Substance: ALENDRONATE SODIUM
     Dosage: 70 MG
     Route: 048
  4. XIPOCOL [Concomitant]

REACTIONS (1)
  - Osteonecrosis [Unknown]

NARRATIVE: CASE EVENT DATE: 20190715
